FAERS Safety Report 24711932 (Version 1)
Quarter: 2024Q4

REPORT INFORMATION
  Report Type: Spontaneous
  Country: US (occurrence: None)
  Receive Date: 20241209
  Receipt Date: 20241209
  Transmission Date: 20250115
  Serious: Yes (Death)
  Sender: Public
  Company Number: None

PATIENT
  Age: 76 Year
  Sex: Female

DRUGS (4)
  1. ZEPZELCA [Suspect]
     Active Substance: LURBINECTEDIN
     Indication: Neovascular age-related macular degeneration
     Dosage: FREQUENCY : EVERY THREE WEEKS;?
     Route: 042
     Dates: start: 202408
  2. ZEPZELCA [Suspect]
     Active Substance: LURBINECTEDIN
     Indication: Choroidal neovascularisation
  3. ZEPZELCA [Suspect]
     Active Substance: LURBINECTEDIN
     Indication: Lung carcinoma cell type unspecified stage 0
  4. EYLEA HD SDV KIT [Concomitant]

REACTIONS (3)
  - Acute respiratory failure [None]
  - Neuroendocrine carcinoma [None]
  - Brain neoplasm malignant [None]

NARRATIVE: CASE EVENT DATE: 20241204
